FAERS Safety Report 5999910-3 (Version None)
Quarter: 2008Q4

REPORT INFORMATION
  Report Type: 
  Country: None (occurrence: None)
  Receive Date: 20081215
  Receipt Date: 20081205
  Transmission Date: 20090506
  Serious: Yes (Life-Threatening)
  Sender: FDA-Public Use
  Company Number: PHBS2008US06646

PATIENT

DRUGS (2)
  1. PROLEUKIN [Suspect]
     Indication: BREAST CANCER METASTATIC
     Route: 058
  2. TRASTUZUMAB [Suspect]
     Indication: BREAST CANCER METASTATIC
     Dosage: 4 MG/KG
     Route: 042

REACTIONS (2)
  - DIZZINESS [None]
  - HYPERCALCAEMIA [None]
